FAERS Safety Report 24872379 (Version 1)
Quarter: 2025Q1

REPORT INFORMATION
  Report Type: Spontaneous
  Country: GR (occurrence: GR)
  Receive Date: 20250122
  Receipt Date: 20250122
  Transmission Date: 20250409
  Serious: Yes (Life-Threatening, Other)
  Sender: ALKEM
  Company Number: GR-ALKEM LABORATORIES LIMITED-GR-ALKEM-2024-21643

PATIENT
  Age: 61 Year
  Sex: Male

DRUGS (1)
  1. MORPHINE SULFATE [Suspect]
     Active Substance: MORPHINE SULFATE
     Indication: Product used for unknown indication
     Route: 037

REACTIONS (3)
  - Respiratory depression [Unknown]
  - Somnolence [Unknown]
  - Overdose [Unknown]
